FAERS Safety Report 11008568 (Version 1)
Quarter: 2015Q2

REPORT INFORMATION
  Report Type: Spontaneous
  Country: US (occurrence: None)
  Receive Date: 20150408
  Receipt Date: 20150408
  Transmission Date: 20150821
  Serious: Yes (Hospitalization)
  Sender: FDA-Public Use
  Company Number: CIO15021028

PATIENT
  Age: 28 Year
  Sex: Male

DRUGS (8)
  1. CALCIUM CARBONATE. [Suspect]
     Active Substance: CALCIUM CARBONATE
     Route: 048
  2. ALUMINUM HYDROXIDE-MAGNESIUM HYDROXIDE-VISCOUS LIDOCAINE-DICYCLOMINE [Concomitant]
  3. ONDANSETRON [Concomitant]
     Active Substance: ONDANSETRON
  4. POLYETHYLENE GLYCOL (MACROGOL) [Concomitant]
     Active Substance: POLYETHYLENE GLYCOLS
  5. DOCUSATE SODIUM. [Concomitant]
     Active Substance: DOCUSATE SODIUM
  6. SUCRALFATE. [Concomitant]
     Active Substance: SUCRALFATE
  7. NORTRIPTYLINE [Concomitant]
     Active Substance: NORTRIPTYLINE
  8. ESOMEPRAZOLE [Concomitant]
     Active Substance: ESOMEPRAZOLE

REACTIONS (9)
  - Pancreatitis [None]
  - Metabolic acidosis [None]
  - Alanine aminotransferase decreased [None]
  - Blood chloride decreased [None]
  - Acute kidney injury [None]
  - Blood glucose increased [None]
  - Incorrect dose administered [None]
  - Hypercalcaemia [None]
  - Blood potassium decreased [None]

NARRATIVE: CASE EVENT DATE: 201306
